FAERS Safety Report 7736874-6 (Version None)
Quarter: 2011Q3

REPORT INFORMATION
  Report Type: 
  Country: None (occurrence: None)
  Receive Date: 20110908
  Receipt Date: 20110902
  Transmission Date: 20111222
  Serious: Yes (Other)
  Sender: FDA-Public Use
  Company Number: CA-PFIZER INC-2011205789

PATIENT
  Age: 67 Year
  Sex: Male

DRUGS (4)
  1. XALATAN [Suspect]
     Indication: GLAUCOMA
     Dosage: 1 GTT IN BOTH EYES, 1X/DAY
     Route: 047
  2. LIPITOR [Concomitant]
     Indication: BLOOD CHOLESTEROL INCREASED
     Dosage: 1 TAB OF 10MG, FREQUENCY UNK
  3. LOTENSIN [Concomitant]
     Indication: BLOOD PRESSURE INCREASED
     Dosage: UNK
  4. METFORMIN [Concomitant]
     Indication: DIABETES MELLITUS
     Dosage: 2000 MG, 4 TABS OF 500MG DAILY (FREQUENCY UNKNOWN)

REACTIONS (1)
  - INTRAOCULAR PRESSURE INCREASED [None]
